FAERS Safety Report 19400608 (Version 1)
Quarter: 2021Q2

REPORT INFORMATION
  Report Type: Spontaneous
  Country: SE (occurrence: SE)
  Receive Date: 20210610
  Receipt Date: 20210610
  Transmission Date: 20210717
  Serious: Yes (Congenital Anomaly)
  Sender: FDA-Public Use
  Company Number: NVSC2021SE127518

PATIENT

DRUGS (9)
  1. OXCARBAZEPINE. [Suspect]
     Active Substance: OXCARBAZEPINE
     Dosage: MATERNAL DOSE DURING 3RD TRIMESTER
     Route: 064
  2. LEVETIRACETAM. [Suspect]
     Active Substance: LEVETIRACETAM
     Dosage: MATERNAL DOSE DURING 3RD TRIMESTER
     Route: 064
  3. VALPROIC ACID. [Suspect]
     Active Substance: VALPROIC ACID
     Dosage: MATERNAL DOSE DURING 2ND TRIMESTER
     Route: 064
  4. LEVETIRACETAM. [Suspect]
     Active Substance: LEVETIRACETAM
     Dosage: MATERNAL DOSE DURING 2ND TRIMESTER
     Route: 064
  5. VALPROIC ACID. [Suspect]
     Active Substance: VALPROIC ACID
     Dosage: MATERNAL DOSE DURING 3RD TRIMESTER
     Route: 064
  6. OXCARBAZEPINE. [Suspect]
     Active Substance: OXCARBAZEPINE
     Indication: FOETAL EXPOSURE DURING PREGNANCY
     Dosage: MATERNAL DOSE DURING 1ST TRIMESTER
     Route: 064
  7. LEVETIRACETAM. [Suspect]
     Active Substance: LEVETIRACETAM
     Indication: FOETAL EXPOSURE DURING PREGNANCY
     Dosage: MATERNAL DOSE DURING 1ST TRIMESTER
     Route: 064
  8. VALPROIC ACID. [Suspect]
     Active Substance: VALPROIC ACID
     Indication: FOETAL EXPOSURE DURING PREGNANCY
     Dosage: MATERNAL DOSE 1200 MG, QD (DURING 1ST TRIMESTER)
     Route: 064
  9. OXCARBAZEPINE. [Suspect]
     Active Substance: OXCARBAZEPINE
     Dosage: MATERNAL DOSE DURING 2ND TRIMESTER
     Route: 064

REACTIONS (2)
  - Foetal exposure during pregnancy [Unknown]
  - Polydactyly [Unknown]
